FAERS Safety Report 8267097-2 (Version None)
Quarter: 2012Q2

REPORT INFORMATION
  Report Type: 
  Country: None (occurrence: None)
  Receive Date: 20120404
  Receipt Date: 20120320
  Transmission Date: 20120825
  Serious: Yes (Death, Hospitalization)
  Sender: FDA-Public Use
  Company Number: EU-2011-10571

PATIENT
  Age: 78 Year
  Sex: Female

DRUGS (14)
  1. CYMBALTA [Concomitant]
  2. PLETAL [Suspect]
     Indication: PERIPHERAL ARTERIAL OCCLUSIVE DISEASE
     Dosage: 100 MG MILLIGRAM(S), QD, ORAL
     Route: 048
     Dates: start: 20100401, end: 20111029
  3. MORPHINE [Concomitant]
  4. BEPANTHEN (DEXPANTHENOL, HYALURONATE SODIUM) [Concomitant]
  5. METOCLOPRAMIDE [Concomitant]
  6. NOVALGIN (METAMIZOLE SODIUM) [Concomitant]
  7. ACTONEL [Concomitant]
  8. PROCAIN (PROCAINE BENZYLPENICILLIN) [Concomitant]
  9. B-12 (CYANOCOBALAMIN) [Concomitant]
  10. PANTOPRAZOLE SODIUM [Concomitant]
  11. METOPROLOL TARTRATE [Concomitant]
  12. ASPIRIN [Concomitant]
  13. ARTELAC (HYPROMELLOSE) [Concomitant]
  14. DEXAMETHASONE [Concomitant]

REACTIONS (2)
  - PANCYTOPENIA [None]
  - SEPSIS [None]
